FAERS Safety Report 10024101 (Version 1)
Quarter: 2014Q1

REPORT INFORMATION
  Report Type: Spontaneous
  Country: US (occurrence: US)
  Receive Date: 20140320
  Receipt Date: 20140320
  Transmission Date: 20141002
  Serious: No
  Sender: FDA-Public Use
  Company Number: US-PFIZER INC-2014080005

PATIENT
  Sex: Female

DRUGS (3)
  1. CHANTIX [Suspect]
     Dosage: UNK
     Dates: start: 201403
  2. VALIUM [Concomitant]
     Indication: BIPOLAR DISORDER
     Dosage: UNK, TWICE DAILY
     Dates: end: 201403
  3. LITHIUM [Concomitant]
     Indication: BIPOLAR DISORDER
     Dosage: UNK
     Dates: end: 201403

REACTIONS (7)
  - Nausea [Unknown]
  - Irritability [Unknown]
  - Feeling abnormal [Unknown]
  - Panic attack [Unknown]
  - Frustration [Unknown]
  - Stress [Unknown]
  - Headache [Unknown]
